FAERS Safety Report 10616100 (Version 2)
Quarter: 2014Q4

REPORT INFORMATION
  Report Type: Spontaneous
  Country: US (occurrence: US)
  Receive Date: 20141201
  Receipt Date: 20141224
  Transmission Date: 20150529
  Serious: Yes (Hospitalization)
  Sender: FDA-Public Use
  Company Number: US-PFIZER INC-2014327667

PATIENT
  Age: 77 Year
  Sex: Male

DRUGS (9)
  1. FUROSEMIDE. [Suspect]
     Active Substance: FUROSEMIDE
     Dosage: UNK
  2. LEVEMIR [Suspect]
     Active Substance: INSULIN DETEMIR
     Dosage: UNK
  3. VITAMIN D3 [Suspect]
     Active Substance: CHOLECALCIFEROL
     Dosage: UNK
  4. IRON [Suspect]
     Active Substance: IRON
     Dosage: UNK
  5. METFORMIN HCL [Suspect]
     Active Substance: METFORMIN HYDROCHLORIDE
     Dosage: UNK
  6. SIMVASTATIN. [Suspect]
     Active Substance: SIMVASTATIN
     Dosage: UNK
  7. LEVOTHYROXINE SODIUM. [Suspect]
     Active Substance: LEVOTHYROXINE SODIUM
     Dosage: UNK
  8. SUTENT [Suspect]
     Active Substance: SUNITINIB MALATE
     Dosage: 50 MG, UNK
     Route: 048
     Dates: start: 20140217
  9. GLIMEPIRIDE. [Suspect]
     Active Substance: GLIMEPIRIDE
     Dosage: UNK

REACTIONS (2)
  - Ankle fracture [Unknown]
  - Fall [Unknown]
